FAERS Safety Report 6071479-7 (Version None)
Quarter: 2009Q1

REPORT INFORMATION
  Report Type: 
  Country: None (occurrence: None)
  Receive Date: 20090210
  Receipt Date: 20090129
  Transmission Date: 20090719
  Serious: Yes (Other)
  Sender: FDA-Public Use
  Company Number: GB-RANBAXY-2009RR-21513

PATIENT

DRUGS (10)
  1. PRAVASTATIN [Suspect]
     Indication: BLOOD CHOLESTEROL INCREASED
     Dosage: UNK
     Dates: end: 20080901
  2. PRAVASTATIN [Suspect]
     Indication: BLOOD TRIGLYCERIDES INCREASED
  3. OMACOR [Concomitant]
  4. FLECAINIDE ACETATE [Concomitant]
     Dosage: UNK
  5. BENDROFLUAZIDE 2.5 [Concomitant]
  6. AMLODIPINE [Concomitant]
  7. LERCANIDIPINE [Concomitant]
  8. CITALOPRAM HYDROBROMIDE [Concomitant]
     Dosage: 16 MG, UNK
  9. OMEPRAZOLE [Concomitant]
  10. ACETAMINOPHEN W/ CODEINE [Concomitant]

REACTIONS (4)
  - ALANINE AMINOTRANSFERASE INCREASED [None]
  - BLOOD CHOLESTEROL INCREASED [None]
  - BLOOD TRIGLYCERIDES INCREASED [None]
  - GAMMA-GLUTAMYLTRANSFERASE INCREASED [None]
